FAERS Safety Report 4455731-4 (Version None)
Quarter: 2004Q3

REPORT INFORMATION
  Report Type: 
  Country: None (occurrence: None)
  Receive Date: 20040922
  Receipt Date: 20040727
  Transmission Date: 20050211
  Serious: Yes (Hospitalization)
  Sender: FDA-Public Use
  Company Number: PK-ABBOTT-04P-124-0273941-00

PATIENT
  Age: 10 Year
  Sex: Male
  Weight: 28 kg

DRUGS (1)
  1. EPIVAL SYRUP [Suspect]
     Indication: EPILEPSY
     Route: 048
     Dates: start: 20040708, end: 20040715

REACTIONS (1)
  - JAUNDICE [None]
